APPROVED DRUG PRODUCT: ORALTAG
Active Ingredient: IOHEXOL
Strength: 9.7GM/BOT
Dosage Form/Route: FOR SOLUTION;ORAL
Application: N205383 | Product #001
Applicant: INTERPHARMA PRAHA AS
Approved: Mar 26, 2015 | RLD: No | RS: No | Type: DISCN